FAERS Safety Report 7951051-1 (Version None)
Quarter: 2011Q4

REPORT INFORMATION
  Report Type: 
  Country: None (occurrence: None)
  Receive Date: 20111201
  Receipt Date: 20111129
  Transmission Date: 20120403
  Serious: No
  Sender: FDA-Public Use
  Company Number: US-BIOGENIDEC-2011BI045237

PATIENT
  Age: 37 Year
  Sex: Female

DRUGS (2)
  1. TYSABRI [Suspect]
     Indication: MULTIPLE SCLEROSIS
     Route: 042
     Dates: start: 20111027
  2. AVONEX [Concomitant]
     Indication: MULTIPLE SCLEROSIS
     Route: 030

REACTIONS (8)
  - POLLAKIURIA [None]
  - PAIN [None]
  - HYPOAESTHESIA ORAL [None]
  - OCULAR VASCULAR DISORDER [None]
  - OCULAR ICTERUS [None]
  - FATIGUE [None]
  - HEADACHE [None]
  - HYPOAESTHESIA [None]
